FAERS Safety Report 7707290-8 (Version None)
Quarter: 2011Q3

REPORT INFORMATION
  Report Type: 
  Country: None (occurrence: None)
  Receive Date: 20110824
  Receipt Date: 20110816
  Transmission Date: 20111222
  Serious: Yes (Hospitalization)
  Sender: FDA-Public Use
  Company Number: US-PURDUE-USA-2011-0069647

PATIENT
  Age: 87 Year
  Sex: Male
  Weight: 68 kg

DRUGS (1)
  1. COLACE CAPSULES [Suspect]
     Indication: FAECALOMA
     Dosage: 1 CAPSL, BID

REACTIONS (2)
  - FAECALOMA [None]
  - DRUG INEFFECTIVE [None]
